FAERS Safety Report 9675938 (Version 1)
Quarter: 2013Q4

REPORT INFORMATION
  Report Type: Spontaneous
  Country: IT (occurrence: IT)
  Receive Date: 20131107
  Receipt Date: 20131107
  Transmission Date: 20140711
  Serious: Yes (Hospitalization)
  Sender: FDA-Public Use
  Company Number: IT-SHIRE-ALL1-2013-07696

PATIENT
  Age: 91 Year
  Sex: Female

DRUGS (3)
  1. 426 (MIDODRINE) [Suspect]
     Indication: ASTHENIA
     Dosage: 5 MG, 1X/DAY:QD
     Route: 048
     Dates: start: 20130925, end: 20130928
  2. CARDIOASPIRIN [Concomitant]
     Indication: PRODUCT USED FOR UNKNOWN INDICATION
     Dosage: 100 MG, UNKNOWN
     Route: 065
  3. ZOLOFT [Concomitant]
     Indication: PRODUCT USED FOR UNKNOWN INDICATION
     Dosage: 50 MG, UNKNOWN
     Route: 065

REACTIONS (3)
  - Atrial fibrillation [Recovered/Resolved]
  - Cardiac failure [Recovered/Resolved]
  - Off label use [Recovered/Resolved]
